FAERS Safety Report 5361023-1 (Version None)
Quarter: 2007Q2

REPORT INFORMATION
  Report Type: 
  Country: None (occurrence: None)
  Receive Date: 20070618
  Receipt Date: 20070606
  Transmission Date: 20071010
  Serious: Yes (Other)
  Sender: FDA-Public Use
  Company Number: JP-PFIZER INC-2007047098

PATIENT
  Age: 28 Year
  Sex: Female

DRUGS (5)
  1. GABAPEN [Suspect]
     Dosage: DAILY DOSE:900MG
     Route: 048
     Dates: start: 20070529, end: 20070606
  2. PREDONINE [Concomitant]
  3. MEXITIL [Concomitant]
  4. ALFAROL [Concomitant]
     Route: 048
  5. GASTER [Concomitant]

REACTIONS (3)
  - LIVER DISORDER [None]
  - PLATELET COUNT DECREASED [None]
  - PYREXIA [None]
